FAERS Safety Report 14471252 (Version 1)
Quarter: 2018Q1

REPORT INFORMATION
  Report Type: Spontaneous
  Country: US (occurrence: IN)
  Receive Date: 20180131
  Receipt Date: 20180131
  Transmission Date: 20180509
  Serious: No
  Sender: FDA-Public Use
  Company Number: US-PRAGMA PHARMACEUTICALS, LLC-2017PRG00083

PATIENT
  Age: 82 Year
  Sex: Female
  Weight: 70.3 kg

DRUGS (13)
  1. ZOLOFT [Concomitant]
     Active Substance: SERTRALINE HYDROCHLORIDE
     Dosage: 100 MG, 1X/DAY
  2. CLINDAMYCIN. [Suspect]
     Active Substance: CLINDAMYCIN
     Indication: ORAL SURGERY
     Dosage: 600 MG, ONCE PRIOR TO SURGERY
     Route: 048
     Dates: start: 2017, end: 2017
  3. KEFLEX [Suspect]
     Active Substance: CEPHALEXIN
     Indication: CYSTITIS
     Dosage: UNK, ONCE
     Dates: start: 2017, end: 2017
  4. CEFDINIR. [Suspect]
     Active Substance: CEFDINIR
     Indication: CYSTITIS
     Dosage: 300 MG, 2X/DAY
     Route: 048
     Dates: start: 2017, end: 2017
  5. DIPHENOXYLATE - ATROPINE [Suspect]
     Active Substance: ATROPINE SULFATE\DIPHENOXYLATE
     Indication: DIARRHOEA
     Dosage: 5 MG, 4X/DAY, AS NEEDED
     Route: 048
     Dates: start: 2016, end: 2017
  6. CLINDAMYCIN. [Suspect]
     Active Substance: CLINDAMYCIN
     Dosage: 300 MG, 4X/DAY UNTIL ALL TAKEN
     Route: 048
     Dates: start: 2017, end: 2017
  7. ZANAFLEX [Concomitant]
     Active Substance: TIZANIDINE HYDROCHLORIDE
     Indication: CYSTITIS
     Dosage: 4 MG, 1X/DAY AT BEDTIME
  8. XANAX [Concomitant]
     Active Substance: ALPRAZOLAM
     Dosage: 0.25 MG, 4X/DAY AS NEEDED
     Route: 048
  9. SEROQUEL [Concomitant]
     Active Substance: QUETIAPINE FUMARATE
     Dosage: 25 MG, 1X/DAY AT BEDTIME
  10. OMEPRAZOLE. [Concomitant]
     Active Substance: OMEPRAZOLE
     Dosage: UNK, 1X/DAY
  11. KEFLEX [Suspect]
     Active Substance: CEPHALEXIN
     Dosage: UNK, 2X/DAY
     Dates: start: 2017, end: 2017
  12. OXYCODONE/APAP [Concomitant]
     Active Substance: ACETAMINOPHEN\OXYCODONE HYDROCHLORIDE
     Dosage: 10 MG, 3X/DAY
  13. UNSPECIFIED VITAMINS [Concomitant]
     Active Substance: VITAMINS

REACTIONS (5)
  - Diarrhoea [Unknown]
  - Faeces discoloured [Unknown]
  - Tooth fracture [Recovered/Resolved]
  - Pain of skin [Unknown]
  - Palpitations [Not Recovered/Not Resolved]

NARRATIVE: CASE EVENT DATE: 2017
